FAERS Safety Report 15560834 (Version 2)
Quarter: 2019Q2

REPORT INFORMATION
  Report Type: Spontaneous
  Country: US (occurrence: US)
  Receive Date: 20181029
  Receipt Date: 20190524
  Transmission Date: 20190711
  Serious: No
  Sender: FDA-Public Use
  Company Number: US-PFIZER INC-2018441152

PATIENT
  Age: 69 Year
  Sex: Male

DRUGS (3)
  1. AMMONIUM LACTATE. [Concomitant]
     Active Substance: AMMONIUM LACTATE
     Indication: DRY SKIN
     Dosage: UNK UNK, 1X/DAY
     Dates: start: 20180722
  2. EUCRISA [Suspect]
     Active Substance: CRISABOROLE
     Indication: DERMATITIS ATOPIC
     Dosage: 60 GM 2% TWICE A DAY
     Dates: start: 20180822
  3. EUCRISA [Suspect]
     Active Substance: CRISABOROLE
     Indication: DRY SKIN

REACTIONS (1)
  - Eye pain [Not Recovered/Not Resolved]

NARRATIVE: CASE EVENT DATE: 20180825
